FAERS Safety Report 9333386 (Version 1)
Quarter: 2013Q2

REPORT INFORMATION
  Report Type: Spontaneous
  Country: FR (occurrence: FR)
  Receive Date: 20130606
  Receipt Date: 20130606
  Transmission Date: 20140414
  Serious: Yes (Hospitalization)
  Sender: FDA-Public Use
  Company Number: FR-SANOFI-AVENTIS-2013SA054438

PATIENT
  Age: 79 Year
  Sex: Female

DRUGS (10)
  1. LASILIX [Suspect]
     Indication: PRODUCT USED FOR UNKNOWN INDICATION
     Route: 048
     Dates: start: 20130205, end: 20130212
  2. METFORMIN [Interacting]
     Indication: DIABETES MELLITUS
     Route: 048
  3. CLOMIPRAMINE [Concomitant]
  4. BROMAZEPAM [Concomitant]
  5. PRAVASTATINE [Concomitant]
  6. GLICLAZIDE [Concomitant]
  7. FOLIC ACID [Concomitant]
  8. LOPERAMIDE [Concomitant]
     Dosage: STRENGTH: 2 MG
  9. VITAMINE B12 [Concomitant]
     Dosage: FORM:AMPOULE
  10. AMOXICILLIN [Concomitant]
     Indication: PROPHYLAXIS
     Dates: start: 20130205

REACTIONS (2)
  - Lactic acidosis [Recovering/Resolving]
  - Drug interaction [Unknown]
